FAERS Safety Report 6612648-4 (Version None)
Quarter: 2010Q1

REPORT INFORMATION
  Report Type: 
  Country: None (occurrence: None)
  Receive Date: 20100303
  Receipt Date: 20100222
  Transmission Date: 20100710
  Serious: No
  Sender: FDA-Public Use
  Company Number: US-B.I. PHARMACEUTICALS,INC./RIDGEFIELD-2010-BP-01057PF

PATIENT
  Age: 52 Year
  Sex: Female
  Weight: 127.01 kg

DRUGS (8)
  1. SPIRIVA [Suspect]
     Indication: CHRONIC OBSTRUCTIVE PULMONARY DISEASE
     Dosage: 18 MCG
     Route: 055
     Dates: start: 20100119, end: 20100126
  2. LISINOPRIL AND HYDROCHLOROTHIAZIDE [Concomitant]
     Dates: start: 20080428
  3. ATENOLOL [Concomitant]
     Dosage: 100 MG
     Dates: start: 20080428
  4. AMLODIPINE [Concomitant]
     Dosage: 5 MG
     Dates: start: 20080506
  5. LISINOPRIL [Concomitant]
     Dosage: 20 MG
     Dates: start: 20080506
  6. MELOXICAM [Concomitant]
     Dosage: 15 MG
     Dates: start: 20090826
  7. TRAMADOL HCL [Concomitant]
     Dates: start: 20091005
  8. DUONEB [Concomitant]
     Dates: start: 20090119

REACTIONS (4)
  - HYPERSENSITIVITY [None]
  - RASH [None]
  - RASH ERYTHEMATOUS [None]
  - RASH PRURITIC [None]
